FAERS Safety Report 6310798-3 (Version None)
Quarter: 2009Q3

REPORT INFORMATION
  Report Type: 
  Country: None (occurrence: None)
  Receive Date: 20090812
  Receipt Date: 20090728
  Transmission Date: 20100115
  Serious: Yes (Hospitalization, Disabling)
  Sender: FDA-Public Use
  Company Number: 1-19327152

PATIENT
  Age: 53 Year
  Sex: Female
  Weight: 44.9061 kg

DRUGS (1)
  1. PHENYTOIN [Suspect]
     Indication: CONVULSION PROPHYLAXIS
     Dosage: 1000MG X1, 300MG/DAY, INTRAVENOUS
     Route: 042

REACTIONS (11)
  - APHASIA [None]
  - BLOOD ALBUMIN DECREASED [None]
  - DRUG TOXICITY [None]
  - HAEMATOMA [None]
  - HYPERGLYCAEMIA [None]
  - LETHARGY [None]
  - METABOLIC DISORDER [None]
  - PHYSICAL ASSAULT [None]
  - PYREXIA [None]
  - SUBARACHNOID HAEMORRHAGE [None]
  - TRAUMATIC BRAIN INJURY [None]
